FAERS Safety Report 5066711-2 (Version None)
Quarter: 2006Q3

REPORT INFORMATION
  Report Type: 
  Country: None (occurrence: None)
  Receive Date: 20060801
  Receipt Date: 20060726
  Transmission Date: 20061208
  Serious: Yes (Hospitalization)
  Sender: FDA-Public Use
  Company Number: IT-GLAXOSMITHKLINE-B0432711A

PATIENT
  Age: 66 Year
  Sex: Male

DRUGS (1)
  1. AMOXICILLIN + CLAVULANATE POTASSIUM [Suspect]
     Indication: SKIN BACTERIAL INFECTION
     Dosage: 1U PER DAY
     Route: 048
     Dates: start: 20060722, end: 20060722

REACTIONS (4)
  - ASTHMA [None]
  - HYPOTENSION [None]
  - RASH ERYTHEMATOUS [None]
  - RASH PRURITIC [None]
